FAERS Safety Report 15695597 (Version 1)
Quarter: 2018Q4

REPORT INFORMATION
  Report Type: Spontaneous
  Country: US (occurrence: US)
  Receive Date: 20181206
  Receipt Date: 20181206
  Transmission Date: 20190205
  Serious: Yes (Other)
  Sender: FDA-Public Use
  Company Number: US-PFIZER INC-2018496433

PATIENT
  Age: 89 Year
  Sex: Female
  Weight: 54.42 kg

DRUGS (2)
  1. LETROZOLE. [Concomitant]
     Active Substance: LETROZOLE
     Indication: METASTASIS
     Dosage: UNK
  2. IBRANCE [Suspect]
     Active Substance: PALBOCICLIB
     Indication: LEUKAEMIA
     Dosage: 100 MG, 1X/DAY [EVERY MORNING]
     Route: 048

REACTIONS (5)
  - Memory impairment [Unknown]
  - Rhinorrhoea [Not Recovered/Not Resolved]
  - Lacrimation increased [Not Recovered/Not Resolved]
  - Product use in unapproved indication [Unknown]
  - Dry age-related macular degeneration [Unknown]
